FAERS Safety Report 4699321-7 (Version None)
Quarter: 2005Q2

REPORT INFORMATION
  Report Type: 
  Country: None (occurrence: None)
  Receive Date: 20050624
  Receipt Date: 20050520
  Transmission Date: 20051028
  Serious: Yes (Life-Threatening, Hospitalization)
  Sender: FDA-Public Use
  Company Number: JP-GLAXOSMITHKLINE-B0381988A

PATIENT
  Age: 82 Year
  Sex: Female

DRUGS (10)
  1. VALTREX [Suspect]
     Indication: HERPES ZOSTER
     Dosage: 1000MG THREE TIMES PER DAY
     Route: 048
     Dates: start: 20050517, end: 20050519
  2. TEGRETOL [Suspect]
     Indication: NEURALGIA
     Dosage: 100MG TWICE PER DAY
     Route: 048
     Dates: start: 20050517, end: 20050519
  3. MASHI-NIN-GAN [Concomitant]
     Indication: CONSTIPATION
     Dosage: 5G PER DAY
     Route: 048
     Dates: start: 19990217
  4. AMLODIN [Concomitant]
     Indication: HYPERTENSION
     Dosage: 2.5MG PER DAY
     Route: 048
     Dates: start: 19950718
  5. MERISLON [Concomitant]
     Indication: MENIERE'S DISEASE
     Dosage: 36MG PER DAY
     Route: 048
     Dates: start: 19990510
  6. LENDEM [Concomitant]
     Indication: INSOMNIA
     Dosage: .25MG PER DAY
     Route: 048
     Dates: start: 19960806
  7. SODIUM CHONDROITIN SULPHATE [Concomitant]
  8. SODIUM SALICYLATE ECT [Concomitant]
  9. MECOBALAMIN [Concomitant]
  10. EXTRACT OF INFLAMMATORY RABBIT SKIN INOCULATED WITH VACCINIA VIRUS [Concomitant]

REACTIONS (9)
  - ASTHENIA [None]
  - DEPRESSED LEVEL OF CONSCIOUSNESS [None]
  - DIZZINESS [None]
  - MICTURITION DISORDER [None]
  - OVERDOSE [None]
  - PALPITATIONS [None]
  - RENAL FAILURE ACUTE [None]
  - SOMNOLENCE [None]
  - SUPRAVENTRICULAR TACHYCARDIA [None]
